FAERS Safety Report 4503284-4 (Version None)
Quarter: 2004Q4

REPORT INFORMATION
  Report Type: 
  Country: None (occurrence: None)
  Receive Date: 20041112
  Receipt Date: 20041101
  Transmission Date: 20050328
  Serious: Yes (Congenital Anomaly)
  Sender: FDA-Public Use
  Company Number: S04-USA-06889-02

PATIENT

DRUGS (2)
  1. CELEXA [Suspect]
     Indication: ANXIETY
     Dosage: 40 MG QD, TRANSPLACENTAL
     Route: 064
     Dates: start: 20040101, end: 20040201
  2. CELEXA [Suspect]
     Indication: DEPRESSION
     Dosage: 40 MG QD, TRANSPLACENTAL
     Route: 064
     Dates: start: 20040101, end: 20040201

REACTIONS (4)
  - CAESAREAN SECTION [None]
  - DRUG EXPOSURE DURING PREGNANCY [None]
  - FALLOT'S TETRALOGY [None]
  - PHALANGEAL HYPOPLASIA [None]
